FAERS Safety Report 10816567 (Version 5)
Quarter: 2016Q1

REPORT INFORMATION
  Report Type: Spontaneous
  Country: BR (occurrence: BR)
  Receive Date: 20150218
  Receipt Date: 20160322
  Transmission Date: 20160525
  Serious: Yes (Disabling, Other)
  Sender: FDA-Public Use
  Company Number: BR-PFIZER INC-2015023455

PATIENT
  Age: 45 Year
  Sex: Female
  Weight: 78.5 kg

DRUGS (11)
  1. GLIFAGE [Concomitant]
     Active Substance: METFORMIN HYDROCHLORIDE
     Dosage: UNK
  2. GLIFAGE XR [Concomitant]
     Active Substance: METFORMIN HYDROCHLORIDE
     Indication: DIABETES MELLITUS
     Dosage: 500
  3. SUTENT [Suspect]
     Active Substance: SUNITINIB MALATE
     Dosage: 25 MG, DAILY
     Route: 048
     Dates: start: 201501
  4. SIMVASTATIN. [Concomitant]
     Active Substance: SIMVASTATIN
     Dosage: UNK
  5. SUTENT [Suspect]
     Active Substance: SUNITINIB MALATE
     Dosage: ONE DAY SHE USES 37.5 MG AND THE OTHER DAY SHE USES 25 MG, ALTERNATE DAY
     Dates: start: 201412
  6. NPH INSULIN [Concomitant]
     Active Substance: INSULIN BEEF
     Indication: DIABETES MELLITUS
     Dosage: 20 IU, AT NIGHT
  7. SUTENT [Suspect]
     Active Substance: SUNITINIB MALATE
     Indication: PANCREATIC NEUROENDOCRINE TUMOUR METASTATIC
     Dosage: UNK
     Route: 048
  8. SUTENT [Suspect]
     Active Substance: SUNITINIB MALATE
     Dosage: 25 MG IN ALTERNATE DAYS
     Route: 048
  9. JANUVIA [Concomitant]
     Active Substance: SITAGLIPTIN PHOSPHATE
     Indication: DIABETES MELLITUS
     Dosage: 100
  10. SUTENT [Suspect]
     Active Substance: SUNITINIB MALATE
     Indication: PANCREATIC NEUROENDOCRINE TUMOUR
     Dosage: 37.5 MG, DAILY CONTINUOS
     Route: 048
     Dates: start: 20141226
  11. OCTREOTIDE LAR [Concomitant]
     Active Substance: OCTREOTIDE
     Dosage: 30 MG, MONTHLY

REACTIONS (32)
  - Hyperaemia [Recovering/Resolving]
  - Skin plaque [Unknown]
  - Mouth injury [Not Recovered/Not Resolved]
  - Nausea [Unknown]
  - Burning sensation [Unknown]
  - Dry mouth [Unknown]
  - Blister [Not Recovered/Not Resolved]
  - Tongue disorder [Recovering/Resolving]
  - Dry eye [Recovering/Resolving]
  - Eyelid oedema [Recovering/Resolving]
  - Hypersensitivity [Unknown]
  - Abscess limb [Unknown]
  - Eating disorder [Unknown]
  - Tongue dry [Unknown]
  - Erythema [Unknown]
  - Nasal dryness [Not Recovered/Not Resolved]
  - Musculoskeletal stiffness [Unknown]
  - Acne [Unknown]
  - Skin exfoliation [Recovering/Resolving]
  - Eyelid disorder [Recovering/Resolving]
  - Diarrhoea [Unknown]
  - Peripheral swelling [Unknown]
  - Palmar-plantar erythrodysaesthesia syndrome [Recovering/Resolving]
  - Skin irritation [Unknown]
  - Acne [Unknown]
  - Skin fissures [Unknown]
  - Pain in extremity [Recovering/Resolving]
  - Cheilitis [Recovering/Resolving]
  - Pain [Not Recovered/Not Resolved]
  - Erythema [Not Recovered/Not Resolved]
  - Aptyalism [Unknown]
  - Thyroid disorder [Recovered/Resolved]

NARRATIVE: CASE EVENT DATE: 201501
